FAERS Safety Report 10745327 (Version 1)
Quarter: 2015Q1

REPORT INFORMATION
  Report Type: Spontaneous
  Country: US (occurrence: None)
  Receive Date: 20150115
  Receipt Date: 20150115
  Transmission Date: 20150721
  Serious: Yes (Other)
  Sender: FDA-Public Use
  Company Number: 2014SCPR009463

PATIENT
  Sex: Female

DRUGS (5)
  1. METOPROLOL (METOPROLOL) UNKNOWN, UNKNOWN [Suspect]
     Active Substance: METOPROLOL
     Route: 064
  2. PITOCIN [Suspect]
     Active Substance: OXYTOCIN
     Route: 064
     Dates: start: 2014, end: 2014
  3. UNISOM /00334102/ (DOXYLAMINE SUCCINATE) [Concomitant]
  4. ENOXAPARIN [Suspect]
     Active Substance: ENOXAPARIN
     Route: 064
  5. HEPARIN [Suspect]
     Active Substance: HEPARIN SODIUM
     Route: 064

REACTIONS (2)
  - Foetal exposure during pregnancy [None]
  - Foetal heart rate decreased [None]

NARRATIVE: CASE EVENT DATE: 2014
